FAERS Safety Report 10418192 (Version 1)
Quarter: 2014Q3

REPORT INFORMATION
  Report Type: Spontaneous
  Country: TR (occurrence: TR)
  Receive Date: 20140829
  Receipt Date: 20140829
  Transmission Date: 20150326
  Serious: Yes (Hospitalization)
  Sender: FDA-Public Use
  Company Number: TR-NOVOPROD-420563

PATIENT
  Age: 12 Year
  Sex: Male
  Weight: 41 kg

DRUGS (1)
  1. NORDITROPIN [Suspect]
     Active Substance: SOMATROPIN
     Indication: OSTEOGENESIS IMPERFECTA
     Dosage: 1.2 MG, QD
     Route: 065
     Dates: start: 201405

REACTIONS (1)
  - Bone prosthesis insertion [Recovered/Resolved]
